FAERS Safety Report 7440108-X (Version None)
Quarter: 2011Q2

REPORT INFORMATION
  Report Type: 
  Country: None (occurrence: None)
  Receive Date: 20110427
  Receipt Date: 20110414
  Transmission Date: 20111010
  Serious: Yes (Life-Threatening, Hospitalization)
  Sender: FDA-Public Use
  Company Number: JP-JNJFOC-20101205660

PATIENT
  Age: 36 Year
  Sex: Male
  Weight: 53 kg

DRUGS (3)
  1. AZULFIDINE [Concomitant]
     Route: 048
  2. REMICADE [Suspect]
     Route: 042
  3. REMICADE [Suspect]
     Indication: ANKYLOSING SPONDYLITIS
     Route: 042

REACTIONS (12)
  - TORSADE DE POINTES [None]
  - VENTRICULAR TACHYCARDIA [None]
  - BRADYCARDIA [None]
  - INFUSION RELATED REACTION [None]
  - PRINZMETAL ANGINA [None]
  - JOINT ANKYLOSIS [None]
  - PNEUMONIA [None]
  - ADVERSE EVENT [None]
  - ANAPHYLACTIC SHOCK [None]
  - VENTRICULAR FIBRILLATION [None]
  - TONIC CONVULSION [None]
  - ELECTROCARDIOGRAM QT PROLONGED [None]
